FAERS Safety Report 7230460-2 (Version None)
Quarter: 2011Q1

REPORT INFORMATION
  Report Type: 
  Country: None (occurrence: None)
  Receive Date: 20110118
  Receipt Date: 20110113
  Transmission Date: 20110831
  Serious: Yes (Hospitalization)
  Sender: FDA-Public Use
  Company Number: DE-BRISTOL-MYERS SQUIBB COMPANY-15484918

PATIENT
  Age: 73 Year
  Sex: Male
  Weight: 88 kg

DRUGS (2)
  1. XELODA [Suspect]
     Indication: GASTROOESOPHAGEAL CANCER
     Dosage: RECENT INF ON 13DEC2010; TABLET; ON DAY 1-15.
     Route: 048
     Dates: start: 20100927, end: 20101213
  2. CISPLATIN [Suspect]
     Indication: GASTROOESOPHAGEAL CANCER
     Dosage: RECENT INF ON 06DEC2010; ON DAY 1 OF CYCLE.
     Route: 042
     Dates: start: 20100927

REACTIONS (1)
  - ATRIAL FIBRILLATION [None]
